FAERS Safety Report 14929181 (Version 2)
Quarter: 2018Q2

REPORT INFORMATION
  Report Type: Report from Study
  Country: IT (occurrence: IT)
  Receive Date: 20180523
  Receipt Date: 20180601
  Transmission Date: 20180711
  Serious: Yes (Hospitalization, Other)
  Sender: FDA-Public Use
  Company Number: IT-CELGENEUS-ITA-20180504408

PATIENT
  Age: 75 Year
  Sex: Female
  Weight: 52.5 kg

DRUGS (11)
  1. AMIODARONE HIKMA [Concomitant]
     Active Substance: AMIODARONE
     Indication: ARRHYTHMIA
     Dosage: 150 MILLIGRAM
     Route: 041
     Dates: start: 20180502, end: 20180503
  2. ALLOPURINOL. [Concomitant]
     Active Substance: ALLOPURINOL
     Indication: PROPHYLAXIS
     Route: 048
     Dates: start: 20180404
  3. VENETOCLAX. [Concomitant]
     Active Substance: VENETOCLAX
     Indication: ACUTE MYELOID LEUKAEMIA
     Route: 065
  4. NORMAL SALINE SOLUTION [Concomitant]
     Indication: PROPHYLAXIS
     Route: 048
     Dates: start: 20180404, end: 20180511
  5. ISOPTIN [Concomitant]
     Active Substance: VERAPAMIL HYDROCHLORIDE
     Indication: ARRHYTHMIA
     Dosage: 80 MILLIGRAM
     Route: 048
     Dates: start: 20180413, end: 20180415
  6. LANOXIN [Concomitant]
     Active Substance: DIGOXIN
     Indication: ARRHYTHMIA
     Dosage: .5 MILLIGRAM
     Route: 041
     Dates: start: 20180416, end: 20180416
  7. AMIODARONE HIKMA [Concomitant]
     Active Substance: AMIODARONE
     Dosage: 450 MILLIGRAM
     Route: 041
     Dates: start: 20180414, end: 20180415
  8. AMIODARONE RATIOPHARM [Concomitant]
     Active Substance: AMIODARONE
     Indication: ARRHYTHMIA
     Route: 048
     Dates: start: 20180416, end: 20180513
  9. AZACITIDINE. [Suspect]
     Active Substance: AZACITIDINE
     Indication: ACUTE MYELOID LEUKAEMIA
     Route: 058
     Dates: start: 20180426
  10. BISOPROLOLO SANDOZ [Concomitant]
     Active Substance: BISOPROLOL FUMARATE
     Indication: ARRHYTHMIA
     Dosage: 2.5 MILLIGRAM
     Route: 048
     Dates: start: 20180503
  11. AMIODARONE RATIOPHARM [Concomitant]
     Active Substance: AMIODARONE
     Dosage: 200 MILLIGRAM
     Route: 048
     Dates: start: 20180514

REACTIONS (1)
  - Pneumonia [Not Recovered/Not Resolved]

NARRATIVE: CASE EVENT DATE: 20180502
